FAERS Safety Report 7083751-2 (Version None)
Quarter: 2010Q4

REPORT INFORMATION
  Report Type: 
  Country: None (occurrence: None)
  Receive Date: 20101104
  Receipt Date: 20101027
  Transmission Date: 20110411
  Serious: Yes (Hospitalization, Disabling, Other)
  Sender: FDA-Public Use
  Company Number: US-MERCK-0905USA02778

PATIENT
  Age: 47 Year
  Sex: Female
  Weight: 73 kg

DRUGS (4)
  1. FOSAMAX [Suspect]
     Indication: OSTEOPOROSIS
     Route: 048
     Dates: start: 19980101, end: 20060101
  2. FOSAMAX [Suspect]
     Route: 048
  3. CALCIUM (UNSPECIFIED) [Concomitant]
     Route: 065
  4. VITAMIN D (UNSPECIFIED) [Concomitant]
     Route: 065

REACTIONS (17)
  - ARTHRITIS [None]
  - CELLULITIS [None]
  - COLON CANCER [None]
  - EAR PAIN [None]
  - EXOSTOSIS [None]
  - GINGIVAL BLEEDING [None]
  - GINGIVAL DISORDER [None]
  - IRRITABLE BOWEL SYNDROME [None]
  - JAW DISORDER [None]
  - JOINT SWELLING [None]
  - ORAL INFECTION [None]
  - OSTEONECROSIS OF JAW [None]
  - PAIN IN JAW [None]
  - PERIODONTAL DISEASE [None]
  - SINUS DISORDER [None]
  - TOOTH ABSCESS [None]
  - TOOTHACHE [None]
